FAERS Safety Report 6031724-0 (Version None)
Quarter: 2009Q1

REPORT INFORMATION
  Report Type: 
  Country: None (occurrence: None)
  Receive Date: 20090108
  Receipt Date: 20081230
  Transmission Date: 20090719
  Serious: Yes (Other)
  Sender: FDA-Public Use
  Company Number: B0552908A

PATIENT
  Age: 64 Year
  Sex: Male

DRUGS (5)
  1. VALTREX [Suspect]
     Indication: DRUG USE FOR UNKNOWN INDICATION
     Dosage: 500MG PER DAY
     Route: 048
     Dates: start: 20081001, end: 20081001
  2. SANDIMMUNE [Suspect]
     Indication: DRUG USE FOR UNKNOWN INDICATION
     Dosage: 50MG PER DAY
     Route: 048
     Dates: start: 20070101, end: 20081029
  3. CEFEPIME [Suspect]
     Indication: DRUG USE FOR UNKNOWN INDICATION
     Dosage: 2000MG TWICE PER DAY
     Route: 048
     Dates: start: 20081001, end: 20081029
  4. EFFEXOR [Suspect]
     Indication: DRUG USE FOR UNKNOWN INDICATION
     Dosage: 37.5MG PER DAY
     Route: 048
     Dates: start: 20081001, end: 20081029
  5. UNSPECIFIED IMMUNOSUPPRESSANTS [Concomitant]
     Indication: GRAFT VERSUS HOST DISEASE
     Route: 065
     Dates: start: 20080101

REACTIONS (2)
  - CONFUSIONAL STATE [None]
  - IMMUNOSUPPRESSANT DRUG LEVEL INCREASED [None]
